FAERS Safety Report 11136161 (Version 4)
Quarter: 2015Q3

REPORT INFORMATION
  Report Type: Spontaneous
  Country: US (occurrence: US)
  Receive Date: 20150526
  Receipt Date: 20150723
  Transmission Date: 20151125
  Serious: Yes (Hospitalization, Other)
  Sender: FDA-Public Use
  Company Number: US-PFIZER INC-2015173387

PATIENT
  Age: 68 Year
  Sex: Male
  Weight: 90 kg

DRUGS (6)
  1. IBUPROFEN. [Concomitant]
     Active Substance: IBUPROFEN
     Dosage: UNK
  2. DILANTIN [Suspect]
     Active Substance: PHENYTOIN
     Indication: EPILEPSY
     Dosage: 100 MG, DAILY, LITTLE RED AND WHITE ONES
     Route: 048
     Dates: start: 1972
  3. CLARITIN-D 12 HOUR [Concomitant]
     Active Substance: LORATADINE\PSEUDOEPHEDRINE SULFATE
     Dosage: UNK
  4. DIAZEPAM. [Concomitant]
     Active Substance: DIAZEPAM
     Dosage: 10 MG, 1X/DAY
  5. DILANTIN [Suspect]
     Active Substance: PHENYTOIN
     Dosage: 40 MG, 3X/DAY
     Route: 048
  6. DILANTIN [Suspect]
     Active Substance: PHENYTOIN
     Dosage: 100 MG, FIVE A DAY
     Route: 048

REACTIONS (8)
  - Hemiplegia [Unknown]
  - Cerebrovascular accident [Unknown]
  - Rhinorrhoea [Unknown]
  - Cerebral disorder [Unknown]
  - Increased upper airway secretion [Unknown]
  - Memory impairment [Unknown]
  - Hypersensitivity [Not Recovered/Not Resolved]
  - Headache [Unknown]

NARRATIVE: CASE EVENT DATE: 2014
